FAERS Safety Report 6138484-3 (Version None)
Quarter: 2009Q1

REPORT INFORMATION
  Report Type: 
  Country: None (occurrence: None)
  Receive Date: 20090331
  Receipt Date: 20090326
  Transmission Date: 20090719
  Serious: Yes (Other)
  Sender: FDA-Public Use
  Company Number: TW-PFIZER INC-2009177223

PATIENT

DRUGS (10)
  1. BLINDED *PLACEBO [Suspect]
     Indication: COLORECTAL CANCER
     Dosage: 37.5 MG, DAILY
     Route: 048
     Dates: start: 20080908
  2. BLINDED SUNITINIB MALATE [Suspect]
     Indication: COLORECTAL CANCER
     Dosage: 37.5 MG, DAILY
     Route: 048
     Dates: start: 20080908
  3. IRINOTECAN HCL [Suspect]
     Indication: COLORECTAL CANCER
     Dosage: 280 MG, EVERY 2 WEEKS
     Route: 042
     Dates: start: 20080908
  4. FLUOROURACIL [Suspect]
     Indication: COLORECTAL CANCER
     Dosage: 600 MG, EVERY 2 WEEKS
     Route: 040
     Dates: start: 20080908
  5. FLUOROURACIL [Suspect]
     Dosage: 3700 MG, EVERY 2 WEEKS
     Route: 041
     Dates: start: 20080908
  6. RESCUVOLIN [Suspect]
     Indication: COLORECTAL CANCER
     Dosage: FREQUENCY: EVEYR 2 WEEKS;
     Dates: start: 20080908
  7. PROSCAR [Concomitant]
     Indication: BENIGN PROSTATIC HYPERPLASIA
     Dosage: 5 MG, 1X/DAY
     Dates: start: 20090206
  8. AVANDIA [Concomitant]
     Indication: HYPERGLYCAEMIA
     Dosage: 4 MG, 1X/DAY
     Dates: start: 20080908
  9. GLIBEN [Concomitant]
     Indication: HYPERGLYCAEMIA
     Dosage: 5 MG, 1X/DAY
     Dates: start: 20080908
  10. TAMSULOSIN [Concomitant]
     Indication: BENIGN PROSTATIC HYPERPLASIA
     Dosage: 0.2 MG, 1X/DAY
     Dates: start: 20080908

REACTIONS (2)
  - BLOOD CHLORIDE DECREASED [None]
  - HYPONATRAEMIA [None]
